FAERS Safety Report 6299124-6 (Version None)
Quarter: 2009Q3

REPORT INFORMATION
  Report Type: 
  Country: None (occurrence: None)
  Receive Date: 20090806
  Receipt Date: 20090723
  Transmission Date: 20100115
  Serious: Yes (Other)
  Sender: FDA-Public Use
  Company Number: US-BAYER-200927901NA

PATIENT
  Age: 54 Year
  Sex: Male

DRUGS (30)
  1. MAGNEVIST [Suspect]
     Indication: NUCLEAR MAGNETIC RESONANCE IMAGING ABDOMINAL
     Dosage: TOTAL DAILY DOSE: 18 ML
     Route: 042
     Dates: start: 20050311, end: 20050311
  2. OMNISCAN [Suspect]
     Indication: ANGIOGRAM
     Route: 042
     Dates: start: 20030521, end: 20030521
  3. OMNISCAN [Suspect]
     Dates: start: 20020913, end: 20020913
  4. OMNISCAN [Suspect]
     Dosage: TOTAL DAILY DOSE: 20 ML
     Dates: start: 20030906, end: 20030906
  5. OMNISCAN [Suspect]
     Dates: start: 20030623, end: 20030623
  6. OPTIMARK [Suspect]
     Indication: NUCLEAR MAGNETIC RESONANCE IMAGING ABDOMINAL
     Dosage: TOTAL DAILY DOSE: 20 ML
     Route: 042
     Dates: start: 20040625, end: 20040625
  7. UNSPECIFIED GADOLINIUM CONTRAST AGENT [Suspect]
     Indication: NUCLEAR MAGNETIC RESONANCE IMAGING ABDOMINAL
     Route: 042
     Dates: start: 20050927, end: 20050927
  8. UNSPECIFIED GADOLINIUM CONTRAST AGENT [Suspect]
     Route: 042
     Dates: start: 20050616, end: 20050616
  9. UNSPECIFIED GADOLINIUM CONTRAST AGENT [Suspect]
     Route: 042
     Dates: start: 20050809, end: 20050809
  10. UNSPECIFIED GADOLINIUM CONTRAST AGENT [Suspect]
     Route: 042
     Dates: start: 20051004, end: 20051004
  11. UNSPECIFIED GADOLINIUM CONTRAST AGENT [Suspect]
     Route: 042
     Dates: start: 20041021, end: 20041021
  12. UNSPECIFIED GADOLINIUM CONTRAST AGENT [Suspect]
     Route: 042
     Dates: start: 20050705, end: 20050705
  13. UNSPECIFIED GADOLINIUM CONTRAST AGENT [Suspect]
     Route: 042
     Dates: start: 20041125, end: 20041125
  14. NEPHROVITE [Concomitant]
  15. GLIPIZIDE [Concomitant]
  16. LISINOPRIL [Concomitant]
     Route: 048
  17. LOPRESSOR [Concomitant]
     Route: 048
  18. CALCIUM [Concomitant]
  19. HUMULIN 70/30 [Concomitant]
  20. CARDIZEM [Concomitant]
     Route: 048
  21. ASPIRIN [Concomitant]
     Route: 048
  22. MORPHINE [Concomitant]
  23. PHOSLO [Concomitant]
  24. COUMADIN [Concomitant]
  25. AMIODARONE HCL [Concomitant]
  26. METOPROLOL SUCCINATE [Concomitant]
  27. ALBUTEROL [Concomitant]
  28. PROCRIT [Concomitant]
  29. CEPHALEXIN [Concomitant]
  30. KAYEXALATE [Concomitant]

REACTIONS (16)
  - AREFLEXIA [None]
  - DRY SKIN [None]
  - ERYTHEMA [None]
  - GAIT DISTURBANCE [None]
  - JOINT CONTRACTURE [None]
  - JOINT RANGE OF MOTION DECREASED [None]
  - JOINT STIFFNESS [None]
  - MUSCLE TIGHTNESS [None]
  - NEPHROGENIC SYSTEMIC FIBROSIS [None]
  - OEDEMA [None]
  - PAIN [None]
  - PAIN OF SKIN [None]
  - SKIN DISCOLOURATION [None]
  - SKIN HYPERPIGMENTATION [None]
  - SKIN HYPERTROPHY [None]
  - SKIN TIGHTNESS [None]
